FAERS Safety Report 6626034-4 (Version None)
Quarter: 2010Q1

REPORT INFORMATION
  Report Type: 
  Country: None (occurrence: None)
  Receive Date: 20100309
  Receipt Date: 20100309
  Transmission Date: 20100710
  Serious: Yes (Hospitalization)
  Sender: FDA-Public Use
  Company Number: None

PATIENT
  Age: 65 Year
  Sex: Male

DRUGS (1)
  1. LINEZOLID [Suspect]
     Dosage: 600 MG BID PO
     Route: 048
     Dates: start: 20090918, end: 20091017

REACTIONS (1)
  - HYPOGLYCAEMIA [None]
